FAERS Safety Report 22042054 (Version 1)
Quarter: 2023Q1

REPORT INFORMATION
  Report Type: Spontaneous
  Country: None (occurrence: US)
  Receive Date: 20230227
  Receipt Date: 20230227
  Transmission Date: 20230418
  Serious: No
  Sender: FDA-Public Use
  Company Number: US-Nexgen Pharma, Inc.-2138504

PATIENT
  Age: 43 Year
  Sex: Female

DRUGS (2)
  1. RELAFEN [Suspect]
     Active Substance: NABUMETONE
     Indication: Analgesic therapy
     Route: 048
  2. RELAFEN [Suspect]
     Active Substance: NABUMETONE
     Indication: Inflammation

REACTIONS (4)
  - Headache [Unknown]
  - Abdominal pain upper [Unknown]
  - Abdominal discomfort [Unknown]
  - Diarrhoea [Unknown]
